FAERS Safety Report 17661755 (Version 1)
Quarter: 2020Q2

REPORT INFORMATION
  Report Type: Spontaneous
  Country: GB (occurrence: GB)
  Receive Date: 20200413
  Receipt Date: 20200413
  Transmission Date: 20200713
  Serious: Yes (Hospitalization)
  Sender: FDA-Public Use
  Company Number: GB-PFIZER INC-2020148836

PATIENT
  Age: 83 Year
  Sex: Female

DRUGS (21)
  1. METFORMIN [Suspect]
     Active Substance: METFORMIN HYDROCHLORIDE
     Dosage: 1000 MG, DAILY
     Route: 048
     Dates: end: 20200215
  2. CANDESARTAN. [Suspect]
     Active Substance: CANDESARTAN
     Dosage: 4 MG, DAILY (IN THE MORNING)
     Route: 048
     Dates: end: 20200215
  3. ATORVASTATIN [Concomitant]
     Active Substance: ATORVASTATIN
     Dosage: 40 MG, DAILY AT NIGHT
     Route: 048
  4. LEVOTHYROXINE. [Concomitant]
     Active Substance: LEVOTHYROXINE
     Dosage: 100 UG, DAILY MORNING
     Route: 048
  5. FUROSEMIDE. [Suspect]
     Active Substance: FUROSEMIDE
     Dosage: 40 MG, DAILY (IN THE MORNING)
     Route: 048
     Dates: end: 20200215
  6. APIXABAN [Concomitant]
     Active Substance: APIXABAN
     Dosage: 10 MG, DAILY
     Route: 048
  7. SERTRALINE HCL [Suspect]
     Active Substance: SERTRALINE HYDROCHLORIDE
     Dosage: 50 MG, ALTERNATE DAY
     Route: 048
  8. GLICLAZIDE [Suspect]
     Active Substance: GLICLAZIDE
     Dosage: 120 MG, DAILY (80MG MORNING AND 40MG  AT TEATIME)
     Route: 048
     Dates: end: 20200215
  9. DORZOLAMIDE [Concomitant]
     Active Substance: DORZOLAMIDE
     Dosage: 4 GTT, DAILY ONE DROP IN BOTH EYES TWICE A DAY. 20MG/ML
     Route: 050
  10. CARBOCISTEINE [Concomitant]
     Active Substance: CARBOCYSTEINE
     Dosage: 2250 MG, DAILY
     Route: 048
  11. SALMETEROL [Concomitant]
     Active Substance: SALMETEROL
     Dosage: 2 DF, DAILY 25MICROGRAMS/DOSE
     Route: 050
  12. COCODAMOL [Suspect]
     Active Substance: ACETAMINOPHEN\CODEINE PHOSPHATE
     Dosage: 1 OR 2-4 TIMES A DAY AS NEEDED (30 MG/500 MG)
     Route: 048
     Dates: end: 20200215
  13. TIOTROPIUM [Concomitant]
     Active Substance: TIOTROPIUM
     Dosage: 18 UG, DAILY MORNING
     Route: 050
  14. ALENDRONIC ACID [Concomitant]
     Active Substance: ALENDRONIC ACID
     Dosage: 70 MG, WEEKLY ON WEDNESDAYS
     Route: 048
  15. BISOPROLOL [Concomitant]
     Active Substance: BISOPROLOL
     Dosage: 10 MG, DAILY MORNING
     Route: 048
  16. DIGOXIN. [Concomitant]
     Active Substance: DIGOXIN
     Dosage: 125 UG, DAILY MORNING
     Route: 048
     Dates: start: 20200215, end: 20200219
  17. SALBUTAMOL [Concomitant]
     Active Substance: ALBUTEROL
     Dosage: ONE OR TWO PUFFS  - 100MICROGRAMS/DOSE
     Route: 050
  18. PIOGLITAZONE. [Suspect]
     Active Substance: PIOGLITAZONE
     Dosage: 15 MG, DAILY (IN THE MORNING)
     Route: 048
     Dates: end: 20200215
  19. TRAVOPROST. [Concomitant]
     Active Substance: TRAVOPROST
     Dosage: 2 GTT, DAILY ONE DROP BOTH EYES AT NIGHT. 40MICROGRAMS/ML
     Route: 050
  20. ADCAL D3 [Concomitant]
     Active Substance: CALCIUM CARBONATE\CHOLECALCIFEROL
     Dosage: 4 DF, DAILY 750MG/200UNIT
     Route: 048
  21. FLUTICASONE. [Concomitant]
     Active Substance: FLUTICASONE
     Dosage: 2 DF, DAILY 250MICROGRAMS/DOSE
     Route: 050

REACTIONS (7)
  - Acute kidney injury [Recovered/Resolved]
  - Hypoglycaemia [Recovering/Resolving]
  - Hyponatraemia [Recovered/Resolved]
  - Confusional state [Recovered/Resolved]
  - Urine output decreased [Unknown]
  - Constipation [Recovered/Resolved]
  - Dehydration [Unknown]

NARRATIVE: CASE EVENT DATE: 20200215
